FAERS Safety Report 7074968-1 (Version None)
Quarter: 2010Q4

REPORT INFORMATION
  Report Type: 
  Country: None (occurrence: None)
  Receive Date: 20101029
  Receipt Date: 20100217
  Transmission Date: 20110411
  Serious: No
  Sender: FDA-Public Use
  Company Number: US-WYE-H13696710

PATIENT
  Sex: Female

DRUGS (1)
  1. ADVIL PM [Suspect]
     Dosage: UNKNOWN
     Route: 048

REACTIONS (1)
  - AMNESIA [None]
